FAERS Safety Report 25082080 (Version 3)
Quarter: 2025Q2

REPORT INFORMATION
  Report Type: Spontaneous
  Country: US (occurrence: US)
  Receive Date: 20250317
  Receipt Date: 20250508
  Transmission Date: 20250716
  Serious: Yes (Disabling, Other)
  Sender: AMGEN
  Company Number: US-AMGEN-USASP2025048667

PATIENT
  Age: 77 Year
  Sex: Female

DRUGS (21)
  1. PROLIA [Suspect]
     Active Substance: DENOSUMAB
     Indication: Osteoporosis postmenopausal
     Dosage: 60 MILLIGRAM, Q6MO
     Route: 058
  2. CALCIUM [Concomitant]
     Active Substance: CALCIUM
     Route: 065
  3. BRIMONIDINE [Concomitant]
     Active Substance: BRIMONIDINE TARTRATE
     Route: 065
  4. TIMOLOL [Concomitant]
     Active Substance: TIMOLOL
     Route: 047
  5. LATANOPROST [Concomitant]
     Active Substance: LATANOPROST
     Route: 047
  6. KETOROLAC [Concomitant]
     Active Substance: KETOROLAC TROMETHAMINE
     Route: 065
  7. VITAMIN C [Concomitant]
     Active Substance: ASCORBIC ACID
     Dosage: 1000 MILLIGRAM, QD
     Route: 048
  8. ASPIRIN [Concomitant]
     Active Substance: ASPIRIN
     Dosage: 81 MILLIGRAM, QD
     Route: 048
  9. ALPHAGAN P [Concomitant]
     Active Substance: BRIMONIDINE TARTRATE
     Dosage: 0.15%, 1 GTT DROPS, BID (IN THE MORNING AND IN THE EVENING-RIGHT EYE)
     Route: 047
     Dates: start: 20250225
  10. VITAMIN D [Concomitant]
     Active Substance: VITAMIN D NOS
     Dosage: 125 MCG (5000 UT), 1 CAPSULE, QD
     Route: 048
     Dates: start: 20231206
  11. COLACE [Concomitant]
     Active Substance: DOCUSATE SODIUM
     Dosage: 100 MILLIGRAM, QD AS NEEDED
     Route: 048
  12. FERROUS SULFATE [Concomitant]
     Active Substance: FERROUS SULFATE
     Dosage: 325 MILLIGRAM (65 FE), QOD
     Route: 048
  13. XALATAN [Concomitant]
     Active Substance: LATANOPROST
     Dosage: 0.005%, INSTILL 1 GTT DROPS INTO BOTH EYES, QD (NIGHTLY)
     Route: 047
     Dates: start: 20241112
  14. LEVOTHYROXINE [Concomitant]
     Active Substance: LEVOTHYROXINE
     Dosage: 75 MICROGRAM, QD
     Route: 048
     Dates: start: 20250218, end: 20250418
  15. MINERALS [Concomitant]
     Active Substance: MINERALS
     Dosage: 660 MILLIGRAM, QD
     Route: 048
  16. VITAMINS [Concomitant]
     Active Substance: VITAMINS
     Dosage: UNK UNK, QD
     Route: 048
  17. OMEGA 3 [Concomitant]
     Active Substance: CAPSAICIN
     Dosage: 1000 MILLIGRAM, QD
     Route: 048
  18. Up4 Probiotic + Prebiotic [Concomitant]
     Dosage: 1 TABLET, QD
     Route: 048
  19. SELENIUM [Concomitant]
     Active Substance: SELENIUM
     Dosage: 1 TABLET, QD
     Route: 048
  20. TIMOPTIC [Concomitant]
     Active Substance: TIMOLOL MALEATE
     Dosage: 0.5%, INSTILL 1 GTT DROPS INTO BOTH EYES, BID
     Route: 047
     Dates: start: 20250217
  21. VITAMIN E [Concomitant]
     Active Substance: .ALPHA.-TOCOPHEROL
     Dosage: 400 UNIT, QD
     Route: 048

REACTIONS (6)
  - Exfoliation glaucoma [Unknown]
  - Optic nerve injury [Unknown]
  - Cataract [Unknown]
  - COVID-19 [Unknown]
  - Influenza [Recovered/Resolved]
  - Osteoarthritis [Unknown]

NARRATIVE: CASE EVENT DATE: 20231206
